FAERS Safety Report 9532248 (Version 2)
Quarter: 2014Q1

REPORT INFORMATION
  Report Type: Spontaneous
  Country: GB (occurrence: GB)
  Receive Date: 20130918
  Receipt Date: 20140121
  Transmission Date: 20141002
  Serious: Yes (Life-Threatening, Hospitalization, Other)
  Sender: FDA-Public Use
  Company Number: GB-BAXTER-2013BAX035477

PATIENT
  Age: 50 Year
  Sex: Female
  Weight: 85 kg

DRUGS (3)
  1. CYCLOPHOSPHAMIDE INJECTION 1G [Suspect]
     Indication: BREAST CANCER
     Route: 065
  2. ADRIAMYCIN [Suspect]
     Indication: BREAST CANCER
     Route: 065
     Dates: start: 20130819
  3. TAXOTERE [Suspect]
     Indication: BREAST CANCER
     Route: 065
     Dates: start: 20130819

REACTIONS (2)
  - Enteritis [Recovering/Resolving]
  - Sepsis [Recovering/Resolving]
